FAERS Safety Report 12542105 (Version 2)
Quarter: 2016Q4

REPORT INFORMATION
  Report Type: Spontaneous
  Country: GB (occurrence: GB)
  Receive Date: 20160708
  Receipt Date: 20161019
  Transmission Date: 20170207
  Serious: Yes (Life-Threatening, Hospitalization, Other)
  Sender: FDA-Public Use
  Company Number: PHHY2016GB093793

PATIENT
  Age: 52 Year
  Sex: Male

DRUGS (3)
  1. GLIVEC [Suspect]
     Active Substance: IMATINIB MESYLATE
     Indication: CHRONIC MYELOID LEUKAEMIA
     Route: 065
  2. IMATINIB [Suspect]
     Active Substance: IMATINIB
     Indication: CHRONIC MYELOID LEUKAEMIA
     Dosage: 400 MG, UNK
     Route: 048
     Dates: start: 201603, end: 20160602
  3. HIDROXICARBAMIDA [Concomitant]
     Indication: CHRONIC MYELOID LEUKAEMIA
     Dosage: NOT AT TIME OF ADMISSION
     Route: 065

REACTIONS (9)
  - Posterior reversible encephalopathy syndrome [Recovering/Resolving]
  - Cognitive disorder [Recovering/Resolving]
  - Neuropathy peripheral [Recovering/Resolving]
  - Encephalopathy [Unknown]
  - Cerebral haemorrhage [Recovered/Resolved]
  - Hypertensive encephalopathy [Recovered/Resolved]
  - Haemorrhage intracranial [Recovered/Resolved]
  - Subarachnoid haemorrhage [Recovered/Resolved]
  - Seizure [Recovered/Resolved]

NARRATIVE: CASE EVENT DATE: 20160602
